FAERS Safety Report 14844936 (Version 1)
Quarter: 2018Q2

REPORT INFORMATION
  Report Type: Spontaneous
  Country: GB (occurrence: GB)
  Receive Date: 20180504
  Receipt Date: 20180504
  Transmission Date: 20180711
  Serious: Yes (Other)
  Sender: FDA-Public Use
  Company Number: GB-TEVA-2018-GB-888368

PATIENT
  Age: 61 Year
  Sex: Female
  Weight: 86 kg

DRUGS (8)
  1. CEFALEXIN [Concomitant]
     Active Substance: CEPHALEXIN
     Dosage: 3 DOSAGE FORMS DAILY;
     Dates: start: 20180223, end: 20180302
  2. NITROFURANTOIN. [Concomitant]
     Active Substance: NITROFURANTOIN
     Dosage: AT NIGHT.
     Dates: start: 20150309
  3. CITALOPRAM [Concomitant]
     Active Substance: CITALOPRAM HYDROBROMIDE
     Dosage: 1 DOSAGE FORMS DAILY;
     Dates: start: 20170310
  4. BUTEC [Concomitant]
     Active Substance: BUPRENORPHINE
     Route: 062
     Dates: start: 20160426, end: 20180119
  5. TRIMETHOPRIM. [Suspect]
     Active Substance: TRIMETHOPRIM
     Route: 065
     Dates: start: 20180223
  6. TAMOXIFEN [Concomitant]
     Active Substance: TAMOXIFEN
     Dosage: 1 DOSAGE FORMS DAILY;
     Dates: start: 20140407, end: 20180119
  7. RIZATRIPTAN. [Concomitant]
     Active Substance: RIZATRIPTAN
     Dosage: AS DIRECTED.
     Dates: start: 20140407
  8. BACLOFEN. [Concomitant]
     Active Substance: BACLOFEN
     Dosage: 1 DOSAGE FORMS DAILY; FOR FIVE DAYS THEN INCREA...
     Dates: start: 20140901

REACTIONS (1)
  - Rash erythematous [Recovered/Resolved]

NARRATIVE: CASE EVENT DATE: 20180302
